FAERS Safety Report 7102164-8 (Version None)
Quarter: 2010Q4

REPORT INFORMATION
  Report Type: 
  Country: None (occurrence: None)
  Receive Date: 20101115
  Receipt Date: 20070403
  Transmission Date: 20110411
  Serious: No
  Sender: FDA-Public Use
  Company Number: US-BIOGENIDEC-2007BI007416

PATIENT
  Age: 67 Year
  Sex: Female

DRUGS (4)
  1. TYSABRI [Suspect]
     Indication: MULTIPLE SCLEROSIS
     Route: 042
     Dates: start: 20070125, end: 20070222
  2. AVONEX [Concomitant]
     Indication: MULTIPLE SCLEROSIS
     Route: 030
     Dates: start: 20030101
  3. COPAXONE [Concomitant]
     Indication: MULTIPLE SCLEROSIS
  4. PAXIL [Concomitant]
     Indication: MIGRAINE
     Route: 048

REACTIONS (6)
  - ABASIA [None]
  - ASTHENIA [None]
  - FATIGUE [None]
  - LOSS OF CONTROL OF LEGS [None]
  - OEDEMA PERIPHERAL [None]
  - VISUAL IMPAIRMENT [None]
